FAERS Safety Report 11008220 (Version 2)
Quarter: 2015Q2

REPORT INFORMATION
  Report Type: Spontaneous
  Country: CA (occurrence: None)
  Receive Date: 20150408
  Receipt Date: 20150408
  Transmission Date: 20150821
  Serious: Yes (Other)
  Sender: FDA-Public Use
  Company Number: 2807582

PATIENT
  Age: 27 Year
  Sex: Female

DRUGS (10)
  1. PERTUZUMAB [Suspect]
     Active Substance: PERTUZUMAB
     Indication: BREAST CANCER
  2. TAXOL [Suspect]
     Active Substance: PACLITAXEL
     Indication: BREAST CANCER
  3. VINORELBINE TARTRATE. [Suspect]
     Active Substance: VINORELBINE TARTRATE
     Indication: BREAST CANCER
  4. FRAGMIN [Suspect]
     Active Substance: DALTEPARIN SODIUM
     Indication: PRODUCT USED FOR UNKNOWN INDICATION
  5. VAGIFEM [Concomitant]
     Active Substance: ESTRADIOL
  6. KADCYLA [Suspect]
     Active Substance: ADO-TRASTUZUMAB EMTANSINE
     Indication: HER-2 POSITIVE BREAST CANCER
     Dosage: 306 MG MILLIGRAMS, 1 WEEK
     Route: 042
  7. TAXOTERE [Suspect]
     Active Substance: DOCETAXEL
     Indication: BREAST CANCER
  8. XELODA [Suspect]
     Active Substance: CAPECITABINE
     Indication: BREAST CANCER
  9. ADRIAMYCIN [Concomitant]
     Active Substance: DOXORUBICIN HYDROCHLORIDE
  10. TRASTUZUMAB [Suspect]
     Active Substance: TRASTUZUMAB
     Indication: BREAST CANCER

REACTIONS (10)
  - Weight increased [None]
  - Breast cancer [None]
  - Nasopharyngitis [None]
  - Vessel puncture site bruise [None]
  - Confusional state [None]
  - Hypothalamo-pituitary disorder [None]
  - Malignant neoplasm progression [None]
  - Thrombosis [None]
  - Diplopia [None]
  - Pituitary tumour [None]
